FAERS Safety Report 6897992-8 (Version None)
Quarter: 2010Q3

REPORT INFORMATION
  Report Type: 
  Country: None (occurrence: None)
  Receive Date: 20100802
  Receipt Date: 20070827
  Transmission Date: 20110219
  Serious: Yes (Other)
  Sender: FDA-Public Use
  Company Number: US-PFIZER INC-2007071907

PATIENT
  Sex: Female
  Weight: 90.7 kg

DRUGS (9)
  1. LYRICA [Suspect]
     Indication: HERPES ZOSTER
     Dates: start: 20070801, end: 20070826
  2. LYRICA [Suspect]
     Indication: PAIN
  3. LYRICA [Suspect]
     Indication: NEUROPATHY PERIPHERAL
  4. CADUET [Concomitant]
     Indication: HYPERTENSION
     Dosage: 10MG/20MG
  5. CADUET [Concomitant]
     Indication: BLOOD CHOLESTEROL
  6. POTASSIUM [Concomitant]
  7. VALSARTAN [Concomitant]
  8. LISINOPRIL [Concomitant]
  9. FUROSEMIDE [Concomitant]

REACTIONS (3)
  - CORRECTIVE LENS USER [None]
  - DIPLOPIA [None]
  - VISION BLURRED [None]
